FAERS Safety Report 13188780 (Version 1)
Quarter: 2017Q1

REPORT INFORMATION
  Report Type: Spontaneous
  Country: US (occurrence: US)
  Receive Date: 20170206
  Receipt Date: 20170206
  Transmission Date: 20170428
  Serious: Yes (Hospitalization)
  Sender: FDA-Public Use
  Company Number: US-NAPPMUNDI-USA-2017-0136307

PATIENT
  Age: 64 Year
  Sex: Female

DRUGS (4)
  1. ACTHAR [Concomitant]
     Active Substance: CORTICOTROPIN
     Indication: PRODUCT USED FOR UNKNOWN INDICATION
     Dosage: UNK
     Route: 065
     Dates: start: 201612
  2. OXYCONTIN [Suspect]
     Active Substance: OXYCODONE HYDROCHLORIDE
     Indication: PRODUCT USED FOR UNKNOWN INDICATION
     Dosage: UNK
     Route: 048
     Dates: start: 201612
  3. OXYCONTIN [Suspect]
     Active Substance: OXYCODONE HYDROCHLORIDE
     Dosage: UNK
     Route: 048
  4. ACTHAR [Concomitant]
     Active Substance: CORTICOTROPIN
     Dosage: UNK
     Route: 065
     Dates: end: 201612

REACTIONS (3)
  - Pneumonia [Unknown]
  - Somnolence [Unknown]
  - Influenza [Unknown]

NARRATIVE: CASE EVENT DATE: 201612
